FAERS Safety Report 22167763 (Version 1)
Quarter: 2023Q2

REPORT INFORMATION
  Report Type: Spontaneous
  Country: US (occurrence: US)
  Receive Date: 20230403
  Receipt Date: 20230403
  Transmission Date: 20230722
  Serious: Yes (Other)
  Sender: FDA-Public Use
  Company Number: US-BRISTOL-MYERS SQUIBB COMPANY-2023-046708

PATIENT
  Sex: Male

DRUGS (3)
  1. NIVOLUMAB [Suspect]
     Active Substance: NIVOLUMAB
     Indication: Transitional cell carcinoma
     Dosage: 1 MG/KG (WEEKS(WK) 0.6)
  2. NIVOLUMAB [Suspect]
     Active Substance: NIVOLUMAB
     Dosage: 3 MG/KG (WK 3)
  3. IPILIMUMAB [Suspect]
     Active Substance: IPILIMUMAB
     Indication: Transitional cell carcinoma

REACTIONS (2)
  - Rash maculo-papular [Unknown]
  - Off label use [Unknown]
